FAERS Safety Report 11009283 (Version 1)
Quarter: 2015Q2

REPORT INFORMATION
  Report Type: Spontaneous
  Country: US (occurrence: None)
  Receive Date: 20150409
  Receipt Date: 20150409
  Transmission Date: 20150821
  Serious: Yes (Hospitalization)
  Sender: FDA-Public Use
  Company Number: None

PATIENT
  Age: 64 Year
  Sex: Male
  Weight: 67 kg

DRUGS (22)
  1. BENZOCAINE. [Concomitant]
     Active Substance: BENZOCAINE
  2. CHOLECALCIFEROL [Concomitant]
     Active Substance: CHOLECALCIFEROL
  3. NOVOLOG [Concomitant]
     Active Substance: INSULIN ASPART
  4. SIMEPREVIR [Suspect]
     Active Substance: SIMEPREVIR
     Indication: HEPATITIS C
     Route: 048
     Dates: start: 20140206, end: 20140724
  5. GABAPENTIN. [Concomitant]
     Active Substance: GABAPENTIN
  6. URSODIOL. [Concomitant]
     Active Substance: URSODIOL
  7. CICLOPIROX. [Concomitant]
     Active Substance: CICLOPIROX
  8. TRICOR [Concomitant]
     Active Substance: FENOFIBRATE
  9. KETOCONAZOLE. [Concomitant]
     Active Substance: KETOCONAZOLE
  10. DOCUSATE SODIUM. [Concomitant]
     Active Substance: DOCUSATE SODIUM
  11. KETOTOLAC TROMETHAMINE [Concomitant]
     Active Substance: KETOROLAC TROMETHAMINE
  12. LIDOCAINE. [Concomitant]
     Active Substance: LIDOCAINE
  13. LIDEX [Concomitant]
     Active Substance: FLUOCINONIDE
  14. FUROSEMIDE. [Concomitant]
     Active Substance: FUROSEMIDE
  15. MAGNESIUM [Concomitant]
     Active Substance: MAGNESIUM
  16. TACROLIMUS. [Concomitant]
     Active Substance: TACROLIMUS
  17. CYCLOBENZAPRINE [Concomitant]
     Active Substance: CYCLOBENZAPRINE
  18. CLEARLAX [Concomitant]
     Active Substance: POLYETHYLENE GLYCOL 3350
  19. SOFOSBUVIR [Suspect]
     Active Substance: SOFOSBUVIR
     Route: 048
  20. CALCIUM CITRATE + VITAMIN D [Concomitant]
  21. LOSARTAN [Concomitant]
     Active Substance: LOSARTAN
  22. CYMBALTA [Concomitant]
     Active Substance: DULOXETINE HYDROCHLORIDE

REACTIONS (4)
  - Upper respiratory tract infection [None]
  - Abdominal pain [None]
  - Headache [None]
  - Constipation [None]

NARRATIVE: CASE EVENT DATE: 20140427
